FAERS Safety Report 6436859-6 (Version None)
Quarter: 2009Q4

REPORT INFORMATION
  Report Type: 
  Country: None (occurrence: None)
  Receive Date: 20091111
  Receipt Date: 20091005
  Transmission Date: 20100525
  Serious: No
  Sender: FDA-Public Use
  Company Number: US-ALLERGAN-0913779US

PATIENT
  Age: 81 Year
  Sex: Male

DRUGS (2)
  1. SANCTURA XR [Suspect]
     Indication: HYPERTONIC BLADDER
  2. COUMADIN [Concomitant]

REACTIONS (1)
  - CONSTIPATION [None]
